FAERS Safety Report 8805764 (Version 2)
Quarter: 2012Q4

REPORT INFORMATION
  Report Type: 
  Country: US (occurrence: US)
  Receive Date: 20120924
  Receipt Date: 20121018
  Transmission Date: 20130627
  Serious: Yes (Death)
  Sender: FDA-Public Use
  Company Number: US-MPIJNJ-2012-06616

PATIENT
  Age: 63 Year
  Sex: Male

DRUGS (9)
  1. VELCADE [Suspect]
     Indication: DIFFUSE LARGE B-CELL LYMPHOMA
     Dosage: 2.9 mg, Cyclic
     Route: 042
     Dates: start: 20120906, end: 20120914
  2. DEXAMETHASONE [Suspect]
     Indication: DIFFUSE LARGE B-CELL LYMPHOMA
     Dosage: 40 mg, Cyclic
     Route: 048
     Dates: start: 20120906, end: 20120909
  3. DEXAMETHASONE [Suspect]
     Dosage: 20 mg, Cyclic
     Route: 048
     Dates: start: 20120914
  4. ACYCLOVIR                          /00587301/ [Concomitant]
     Indication: PROPHYLAXIS
  5. DAPSONE [Concomitant]
     Indication: PROPHYLAXIS
     Dosage: 100 mg, UNK
     Route: 048
  6. IMODIUM                            /00384302/ [Concomitant]
     Indication: DIARRHOEA
  7. ALLOPURINOL [Concomitant]
     Indication: PRODUCT USED FOR UNKNOWN INDICATION
  8. AMLODIPINE [Concomitant]
     Indication: PRODUCT USED FOR UNKNOWN INDICATION
     Dosage: 5 mg, UNK
     Route: 048
  9. POTASSIUM CHLORIDE [Concomitant]
     Indication: PRODUCT USED FOR UNKNOWN INDICATION
     Dosage: 20 mEq, UNK
     Route: 048

REACTIONS (1)
  - Diffuse large B-cell lymphoma [Fatal]
